FAERS Safety Report 17325684 (Version 1)
Quarter: 2020Q1

REPORT INFORMATION
  Report Type: Spontaneous
  Country: CN (occurrence: CN)
  Receive Date: 20200127
  Receipt Date: 20200127
  Transmission Date: 20200409
  Serious: Yes (Other)
  Sender: FDA-Public Use
  Company Number: CN-ASPEN-GLO2020CN000598

PATIENT
  Age: 2 Year
  Sex: Female

DRUGS (7)
  1. CYTARABINE. [Suspect]
     Active Substance: CYTARABINE
     Indication: BONE MARROW CONDITIONING REGIMEN
     Dosage: 2 G/M2, D-11~D-7
     Route: 065
  2. ATG [Suspect]
     Active Substance: LAPINE T-LYMPHOCYTE IMMUNE GLOBULIN
     Indication: BONE MARROW CONDITIONING REGIMEN
     Dosage: 5 MG/KG, D-4~D-1
     Route: 065
  3. BUSULFAN. [Suspect]
     Active Substance: BUSULFAN
     Indication: BONE MARROW CONDITIONING REGIMEN
     Dosage: 0.8 MG/(KG.6H), D-6
     Route: 065
  4. CLADRIBINE. [Suspect]
     Active Substance: CLADRIBINE
     Indication: BONE MARROW CONDITIONING REGIMEN
     Dosage: 5 MG/M2, D-11
     Route: 065
  5. CYCLOPHOSPHAMIDE. [Suspect]
     Active Substance: CYCLOPHOSPHAMIDE
     Indication: BONE MARROW CONDITIONING REGIMEN
     Dosage: 25 MG/M2, D+3~D+4
     Route: 065
  6. IDARUBICIN [Suspect]
     Active Substance: IDARUBICIN
     Indication: BONE MARROW CONDITIONING REGIMEN
     Dosage: 10 MG/M2, D-9~D-7
     Route: 065
  7. MELPHALAN. [Suspect]
     Active Substance: MELPHALAN
     Indication: BONE MARROW CONDITIONING REGIMEN
     Dosage: 70 MG/M2,D-3
     Route: 065

REACTIONS (5)
  - Tumour lysis syndrome [Recovering/Resolving]
  - Traumatic lung injury [Recovering/Resolving]
  - Product use in unapproved indication [Unknown]
  - Pneumonia [Recovering/Resolving]
  - Product use issue [Unknown]
